FAERS Safety Report 23260193 (Version 1)
Quarter: 2023Q4

REPORT INFORMATION
  Report Type: Report from Study
  Country: DE (occurrence: DE)
  Receive Date: 20231204
  Receipt Date: 20231204
  Transmission Date: 20240110
  Serious: Yes (Death, Congenital Anomaly)
  Sender: FDA-Public Use
  Company Number: DE-ABBVIE-5524355

PATIENT

DRUGS (1)
  1. HUMIRA [Suspect]
     Active Substance: ADALIMUMAB
     Indication: Maternal exposure timing unspecified

REACTIONS (3)
  - Death [Fatal]
  - Foetal exposure during pregnancy [Unknown]
  - Foetal chromosome abnormality [Not Recovered/Not Resolved]

NARRATIVE: CASE EVENT DATE: 20230101
